FAERS Safety Report 11632941 (Version 1)
Quarter: 2015Q4

REPORT INFORMATION
  Report Type: Spontaneous
  Country: US (occurrence: None)
  Receive Date: 20151014
  Receipt Date: 20151014
  Transmission Date: 20160304
  Serious: No
  Sender: FDA-Public Use
  Company Number: None

PATIENT
  Age: 43 Year
  Sex: Female
  Weight: 81.65 kg

DRUGS (1)
  1. CELEXA [Suspect]
     Active Substance: CITALOPRAM HYDROBROMIDE
     Indication: DEPRESSION
     Dosage: 1PILL ONCE DAILY ?YEARS
     Route: 048

REACTIONS (6)
  - Confusional state [None]
  - Paraesthesia [None]
  - Arthropod infestation [None]
  - Pruritus [None]
  - Drug withdrawal syndrome [None]
  - Tic [None]

NARRATIVE: CASE EVENT DATE: 20151002
